FAERS Safety Report 7784606-8 (Version None)
Quarter: 2011Q3

REPORT INFORMATION
  Report Type: 
  Country: None (occurrence: None)
  Receive Date: 20110928
  Receipt Date: 20110922
  Transmission Date: 20111222
  Serious: Yes (Other)
  Sender: FDA-Public Use
  Company Number: PHHY2011BR72633

PATIENT
  Sex: Female

DRUGS (4)
  1. COUMADIN [Concomitant]
     Dosage: UNK UKN, UNK
  2. EXELON [Suspect]
     Dosage: 4.6 MG, UNK
     Route: 062
  3. LOSARTAN POTASSIUM [Suspect]
     Dosage: UNK UKN, UNK
  4. AMIODARONE HYDROCHLORIDE [Concomitant]
     Dosage: UNK UKN, UNK

REACTIONS (1)
  - NO ADVERSE EVENT [None]
